FAERS Safety Report 4930756-0 (Version None)
Quarter: 2006Q1

REPORT INFORMATION
  Report Type: 
  Country: None (occurrence: None)
  Receive Date: 20060227
  Receipt Date: 20060213
  Transmission Date: 20060701
  Serious: Yes (Hospitalization, Other)
  Sender: FDA-Public Use
  Company Number: 2006021992

PATIENT
  Age: 59 Year
  Sex: Female

DRUGS (4)
  1. GLUCOTROL XL [Suspect]
     Indication: DIABETES MELLITUS
     Dosage: 5 MG ( 5 MG, 1 IN 1 D)
     Dates: start: 20060204, end: 20060201
  2. VALSARTAN [Concomitant]
  3. SYNTHROID [Concomitant]
  4. PREVACID [Concomitant]

REACTIONS (2)
  - ASTHENIA [None]
  - HYPOAESTHESIA [None]
